FAERS Safety Report 7700207-1 (Version None)
Quarter: 2011Q3

REPORT INFORMATION
  Report Type: 
  Country: None (occurrence: None)
  Receive Date: 20110822
  Receipt Date: 20110810
  Transmission Date: 20111222
  Serious: Yes (Other)
  Sender: FDA-Public Use
  Company Number: US-ELI_LILLY_AND_COMPANY-US201108004701

PATIENT
  Sex: Female

DRUGS (2)
  1. HUMALOG [Suspect]
     Dosage: UNK, OTHER
     Route: 058
  2. HUMALOG [Suspect]
     Indication: TYPE 1 DIABETES MELLITUS
     Dosage: UNK, OTHER
     Route: 058

REACTIONS (4)
  - MALAISE [None]
  - DRUG INEFFECTIVE [None]
  - BLOOD GLUCOSE FLUCTUATION [None]
  - BLOOD GLUCOSE INCREASED [None]
